FAERS Safety Report 21336435 (Version 1)
Quarter: 2022Q3

REPORT INFORMATION
  Report Type: Spontaneous
  Country: US (occurrence: None)
  Receive Date: 20220915
  Receipt Date: 20220915
  Transmission Date: 20221027
  Serious: No
  Sender: FDA-Public Use
  Company Number: None

PATIENT
  Sex: Female
  Weight: 89.36 kg

DRUGS (3)
  1. TAXOTERE [Suspect]
     Active Substance: DOCETAXEL
     Dates: end: 20220902
  2. PERTUZUMAB [Suspect]
     Active Substance: PERTUZUMAB
     Dates: end: 20220902
  3. HERCEPTIN [Suspect]
     Active Substance: TRASTUZUMAB
     Dates: end: 20220902

REACTIONS (8)
  - Tachycardia [None]
  - Pharyngitis streptococcal [None]
  - Myalgia [None]
  - Headache [None]
  - Fatigue [None]
  - Frequent bowel movements [None]
  - Neutrophil count increased [None]
  - Pyrexia [None]

NARRATIVE: CASE EVENT DATE: 20220908
